FAERS Safety Report 7869403-7 (Version None)
Quarter: 2011Q4

REPORT INFORMATION
  Report Type: 
  Country: None (occurrence: None)
  Receive Date: 20111027
  Receipt Date: 20100821
  Transmission Date: 20120403
  Serious: Yes (Hospitalization, Other)
  Sender: FDA-Public Use
  Company Number: 2010AP001801

PATIENT
  Age: 54 Year
  Sex: Female

DRUGS (6)
  1. HALOPERIDOL [Suspect]
     Indication: AGITATION
     Dosage: 45 MG; IM
     Route: 030
  2. RISPERIDONE [Suspect]
     Indication: AGITATION
     Dosage: 4 MG
  3. LORAZEPAM [Concomitant]
  4. LITHIUM CARBONATE [Suspect]
     Indication: AGITATION
     Dosage: 300 MG; BID
  5. LITHIUM CARBONATE [Suspect]
     Indication: BIPOLAR DISORDER
     Dosage: 300 MG; BID
  6. BENZTROPINE MESYLATE [Concomitant]

REACTIONS (13)
  - DISORIENTATION [None]
  - CONFUSIONAL STATE [None]
  - PSYCHOTIC DISORDER [None]
  - DRUG DOSE OMISSION [None]
  - CONDITION AGGRAVATED [None]
  - DELUSION [None]
  - AGITATION [None]
  - DELIRIUM [None]
  - NEUROLEPTIC MALIGNANT SYNDROME [None]
  - AGGRESSION [None]
  - DRUG SCREEN POSITIVE [None]
  - INCOHERENT [None]
  - HALLUCINATION, VISUAL [None]
